FAERS Safety Report 15264231 (Version 4)
Quarter: 2018Q4

REPORT INFORMATION
  Report Type: Spontaneous
  Country: US (occurrence: US)
  Receive Date: 20180810
  Receipt Date: 20181008
  Transmission Date: 20190204
  Serious: No
  Sender: FDA-Public Use
  Company Number: CN-ASTRAZENECA-2018SF01423

PATIENT
  Age: 66 Year
  Sex: Female
  Weight: 72.6 kg

DRUGS (2)
  1. NEXIUM [Suspect]
     Active Substance: ESOMEPRAZOLE MAGNESIUM
     Indication: OESOPHAGITIS
     Route: 048
  2. NEXIUM 24HR [Suspect]
     Active Substance: ESOMEPRAZOLE MAGNESIUM
     Route: 048
     Dates: start: 2018

REACTIONS (13)
  - Drug hypersensitivity [Unknown]
  - Drug ineffective [Unknown]
  - Oral discomfort [Unknown]
  - Intentional product misuse [Unknown]
  - Condition aggravated [Unknown]
  - Tongue discomfort [Unknown]
  - Headache [Recovering/Resolving]
  - Lip swelling [Not Recovered/Not Resolved]
  - Burning sensation [Not Recovered/Not Resolved]
  - Drug effect decreased [Unknown]
  - Trigeminal neuralgia [Recovering/Resolving]
  - Drug effect variable [Unknown]
  - Product quality issue [Unknown]

NARRATIVE: CASE EVENT DATE: 201806
